FAERS Safety Report 4655873-4 (Version None)
Quarter: 2005Q2

REPORT INFORMATION
  Report Type: 
  Country: None (occurrence: None)
  Receive Date: 20050505
  Receipt Date: 20050505
  Transmission Date: 20051028
  Serious: Yes (Death)
  Sender: FDA-Public Use
  Company Number: None

PATIENT
  Age: 85 Year
  Sex: Female
  Weight: 47.6277 kg

DRUGS (1)
  1. VIOXX [Suspect]
     Indication: ARTHRITIS
     Dosage: 1 TABLET ONCE A DAY AFTER DINNER
     Dates: start: 20030701, end: 20050703

REACTIONS (5)
  - BLOOD PRESSURE INCREASED [None]
  - BRAIN STEM HAEMORRHAGE [None]
  - CEREBROVASCULAR ACCIDENT [None]
  - COMA [None]
  - FALL [None]
